FAERS Safety Report 7942690-2 (Version None)
Quarter: 2011Q4

REPORT INFORMATION
  Report Type: 
  Country: None (occurrence: None)
  Receive Date: 20111122
  Receipt Date: 20110808
  Transmission Date: 20120403
  Serious: Yes (Other)
  Sender: FDA-Public Use
  Company Number: PHEH2011US01118

PATIENT
  Sex: Female

DRUGS (1)
  1. GILENYA [Suspect]
     Dosage: ,  , ORAL
     Route: 048

REACTIONS (3)
  - INFECTION [None]
  - VIRAL INFECTION [None]
  - MALAISE [None]
